FAERS Safety Report 6875870-8 (Version None)
Quarter: 2010Q3

REPORT INFORMATION
  Report Type: 
  Country: None (occurrence: None)
  Receive Date: 20100727
  Receipt Date: 20100714
  Transmission Date: 20110219
  Serious: Yes (Death, Hospitalization)
  Sender: FDA-Public Use
  Company Number: IT-PFIZER INC-2010088188

PATIENT
  Age: 64 Year
  Sex: Male

DRUGS (11)
  1. ADRIBLASTINA [Suspect]
     Indication: DIFFUSE LARGE B-CELL LYMPHOMA
     Dosage: 85 MG, TOTAL
     Route: 042
     Dates: start: 20100701, end: 20100701
  2. CYCLOPHOSPHAMIDE [Suspect]
     Indication: DIFFUSE LARGE B-CELL LYMPHOMA
     Dosage: 1300 MG, TOTAL
     Route: 042
     Dates: start: 20100701, end: 20100701
  3. PREDNISONE [Suspect]
     Indication: DIFFUSE LARGE B-CELL LYMPHOMA
     Dosage: 100 MG, 1X/DAY
     Route: 048
     Dates: start: 20100701, end: 20100705
  4. VINCRISTINE SULFATE [Suspect]
     Indication: DIFFUSE LARGE B-CELL LYMPHOMA
     Dosage: 2 MG, TOTAL
     Route: 042
     Dates: start: 20100701, end: 20100701
  5. MABTHERA [Concomitant]
     Indication: DIFFUSE LARGE B-CELL LYMPHOMA
     Dosage: 600 MG
     Route: 042
     Dates: start: 20100709, end: 20100709
  6. TORVAST [Concomitant]
     Indication: DYSLIPIDAEMIA
     Dosage: 20 MG
     Route: 048
  7. BROMAZEPAM [Concomitant]
     Dosage: 15 DROPS
     Route: 048
  8. OMEPRAZOLE [Concomitant]
     Dosage: 20 MG, UNK
     Route: 048
  9. LYRICA [Concomitant]
     Dosage: 150 MG, UNK
     Route: 048
  10. DURAGESIC-100 [Concomitant]
     Dosage: 75 UG, UNK
     Route: 062
  11. MORPHINE SULFATE [Concomitant]
     Dosage: 140 MG, UNK
     Route: 048

REACTIONS (3)
  - MULTI-ORGAN FAILURE [None]
  - NEUTROPENIA [None]
  - SEPSIS [None]
